FAERS Safety Report 25408561 (Version 2)
Quarter: 2025Q2

REPORT INFORMATION
  Report Type: Spontaneous
  Country: CN (occurrence: CN)
  Receive Date: 20250606
  Receipt Date: 20250610
  Transmission Date: 20250716
  Serious: Yes (Other)
  Sender: ELI LILLY AND COMPANY
  Company Number: CN-ELI_LILLY_AND_COMPANY-CN202506000023

PATIENT
  Sex: Female

DRUGS (2)
  1. DONANEMAB [Suspect]
     Active Substance: DONANEMAB
     Indication: Cognitive disorder
     Dosage: UNK UNK, MONTHLY (1/M)
     Route: 042
     Dates: start: 202504
  2. DONANEMAB [Suspect]
     Active Substance: DONANEMAB
     Dosage: 700 MG, MONTHLY (1/M)
     Route: 042
     Dates: start: 20250529

REACTIONS (2)
  - Flushing [Recovering/Resolving]
  - Rash erythematous [Recovering/Resolving]

NARRATIVE: CASE EVENT DATE: 20250529
